FAERS Safety Report 9737438 (Version 1)
Quarter: 2013Q4

REPORT INFORMATION
  Report Type: Spontaneous
  Country: BG (occurrence: BG)
  Receive Date: 20131206
  Receipt Date: 20131206
  Transmission Date: 20140711
  Serious: Yes (Life-Threatening, Hospitalization, Other)
  Sender: FDA-Public Use
  Company Number: BG-MERCK-1312BGR001071

PATIENT
  Age: 3 Month
  Sex: Female
  Weight: 5.3 kg

DRUGS (3)
  1. TIMOLOL MALEATE [Suspect]
     Indication: DEVELOPMENTAL GLAUCOMA
     Route: 047
  2. BRIMONIDINE TARTRATE [Concomitant]
  3. BRINZOLAMIDE [Concomitant]

REACTIONS (4)
  - Cardiogenic shock [Recovered/Resolved]
  - Obstructive airways disorder [Recovered/Resolved]
  - Toxicity to various agents [Recovered/Resolved]
  - Off label use [Unknown]
